FAERS Safety Report 8798359 (Version 2)
Quarter: 2012Q4

REPORT INFORMATION
  Report Type: 
  Country: IT (occurrence: IT)
  Receive Date: 20120920
  Receipt Date: 20121006
  Transmission Date: 20130627
  Serious: Yes (Hospitalization)
  Sender: FDA-Public Use
  Company Number: IT-UCBSA-066247

PATIENT
  Age: 67 Year
  Sex: Male

DRUGS (4)
  1. NEUPRO [Suspect]
     Indication: PARKINSON^S DISEASE
     Route: 062
     Dates: start: 20100101, end: 20120704
  2. SIRIO [Suspect]
     Indication: PARKINSON^S DISEASE
     Dosage: 1.5 DF
     Route: 048
     Dates: start: 20100101, end: 20120703
  3. REQUIP [Suspect]
     Indication: PARKINSON^S DISEASE
     Dosage: 8 MG ,28
     Route: 048
     Dates: start: 20100101, end: 20120703
  4. CARDIRENE [Suspect]
     Dates: start: 20120101, end: 20120704

REACTIONS (1)
  - Purpura [Recovering/Resolving]
